FAERS Safety Report 7476635-9 (Version None)
Quarter: 2011Q2

REPORT INFORMATION
  Report Type: 
  Country: None (occurrence: None)
  Receive Date: 20110512
  Receipt Date: 20110503
  Transmission Date: 20111010
  Serious: Yes (Other)
  Sender: FDA-Public Use
  Company Number: US-ASTRAZENECA-2011SE25353

PATIENT
  Age: 81 Year
  Sex: Male

DRUGS (2)
  1. LUPRON [Concomitant]
  2. CASODEX [Suspect]
     Indication: PROSTATE CANCER
     Route: 048
     Dates: start: 20080101

REACTIONS (1)
  - ATRIAL FIBRILLATION [None]
